FAERS Safety Report 12233667 (Version 2)
Quarter: 2016Q2

REPORT INFORMATION
  Report Type: Report from Study
  Country: VE (occurrence: VE)
  Receive Date: 20160404
  Receipt Date: 20160516
  Transmission Date: 20160815
  Serious: Yes (Death)
  Sender: FDA-Public Use
  Company Number: VE-ABBVIE-16K-178-1597112-00

PATIENT
  Age: 58 Year

DRUGS (1)
  1. HUMIRA [Suspect]
     Active Substance: ADALIMUMAB
     Indication: ANKYLOSING SPONDYLITIS
     Route: 058
     Dates: start: 20130321

REACTIONS (5)
  - Hepatic rupture [Fatal]
  - Hypovolaemic shock [Fatal]
  - Gun shot wound [Fatal]
  - Internal haemorrhage [Fatal]
  - Lung perforation [Fatal]

NARRATIVE: CASE EVENT DATE: 20160109
